FAERS Safety Report 6445934-1 (Version None)
Quarter: 2009Q4

REPORT INFORMATION
  Report Type: 
  Country: None (occurrence: None)
  Receive Date: 20091119
  Receipt Date: 20090129
  Transmission Date: 20100525
  Serious: No
  Sender: FDA-Public Use
  Company Number: A0765895A

PATIENT
  Age: 37 Year
  Sex: Female

DRUGS (2)
  1. BUPROPION HCL [Suspect]
     Indication: DEPRESSION
     Dosage: 150MG PER DAY
     Route: 048
     Dates: start: 20090128
  2. NO CONCURRENT MEDICATION [Concomitant]

REACTIONS (2)
  - HALO VISION [None]
  - VISION BLURRED [None]
